FAERS Safety Report 4415405-2 (Version None)
Quarter: 2004Q3

REPORT INFORMATION
  Report Type: 
  Country: None (occurrence: None)
  Receive Date: 20040730
  Receipt Date: 20040727
  Transmission Date: 20050211
  Serious: Yes (Disabling)
  Sender: FDA-Public Use
  Company Number: 8525

PATIENT
  Age: 34 Year
  Sex: Female
  Weight: 60 kg

DRUGS (1)
  1. MEPERIDINE HCL [Suspect]
     Indication: ANALGESIC EFFECT
     Dosage: 15 MG PRN

REACTIONS (2)
  - ACETABULUM FRACTURE [None]
  - GRAND MAL CONVULSION [None]
